FAERS Safety Report 17317830 (Version 1)
Quarter: 2020Q1

REPORT INFORMATION
  Report Type: Spontaneous
  Country: US (occurrence: US)
  Receive Date: 20200124
  Receipt Date: 20200124
  Transmission Date: 20200409
  Serious: No
  Sender: FDA-Public Use
  Company Number: US-OTSUKA-2019_042512

PATIENT
  Age: 45 Year
  Sex: Male

DRUGS (3)
  1. REXULTI [Suspect]
     Active Substance: BREXPIPRAZOLE
     Indication: MAJOR DEPRESSION
     Dosage: 0.5 MG, UNK
     Route: 065
     Dates: start: 20191220
  2. REXULTI [Suspect]
     Active Substance: BREXPIPRAZOLE
     Indication: ADJUVANT THERAPY
  3. EFFEXOR [Concomitant]
     Active Substance: VENLAFAXINE HYDROCHLORIDE
     Indication: PRODUCT USED FOR UNKNOWN INDICATION
     Dosage: 300 MG, UNK
     Route: 065

REACTIONS (3)
  - Expired product administered [Unknown]
  - Feeling abnormal [Not Recovered/Not Resolved]
  - Restlessness [Not Recovered/Not Resolved]

NARRATIVE: CASE EVENT DATE: 20191220
